FAERS Safety Report 12335102 (Version 6)
Quarter: 2016Q3

REPORT INFORMATION
  Report Type: Report from Study
  Country: US (occurrence: US)
  Receive Date: 20160504
  Receipt Date: 20160914
  Transmission Date: 20161109
  Serious: Yes (Death, Hospitalization)
  Sender: FDA-Public Use
  Company Number: US-EISAI MEDICAL RESEARCH-EC-2016-014071

PATIENT
  Age: 39 Year
  Sex: Female
  Weight: 78.2 kg

DRUGS (23)
  1. DEXAMETHASONE. [Concomitant]
     Active Substance: DEXAMETHASONE
  2. GABAPENTIN. [Concomitant]
     Active Substance: GABAPENTIN
  3. ERIBULIN [Suspect]
     Active Substance: ERIBULIN
     Route: 041
     Dates: start: 201604, end: 20160421
  4. ERIBULIN [Suspect]
     Active Substance: ERIBULIN
     Route: 041
     Dates: start: 20160524, end: 20160524
  5. PEMBROLIZUMAB. [Suspect]
     Active Substance: PEMBROLIZUMAB
     Route: 041
     Dates: start: 201604, end: 20160524
  6. FENTANYL. [Concomitant]
     Active Substance: FENTANYL
  7. LUNESTA [Concomitant]
     Active Substance: ESZOPICLONE
  8. MIRALAX [Concomitant]
     Active Substance: POLYETHYLENE GLYCOL 3350
  9. ACTIQ [Concomitant]
     Active Substance: FENTANYL CITRATE
  10. ASPIRIN. [Concomitant]
     Active Substance: ASPIRIN
  11. TIZANIDINE. [Concomitant]
     Active Substance: TIZANIDINE
  12. DIAZEPAM. [Concomitant]
     Active Substance: DIAZEPAM
  13. ONDANSETRON ODT [Concomitant]
     Active Substance: ONDANSETRON
  14. OMEPRAZOLE. [Concomitant]
     Active Substance: OMEPRAZOLE
  15. HYDROMORPHONE HCL [Concomitant]
     Active Substance: HYDROMORPHONE HYDROCHLORIDE
  16. FENTANYL. [Concomitant]
     Active Substance: FENTANYL
  17. DILAUDID [Concomitant]
     Active Substance: HYDROMORPHONE HYDROCHLORIDE
  18. SENNA-DOCUSATE SODIUM [Concomitant]
  19. LEVAQUIN [Concomitant]
     Active Substance: LEVOFLOXACIN
  20. ERIBULIN [Suspect]
     Active Substance: ERIBULIN
     Indication: TRIPLE NEGATIVE BREAST CANCER
     Route: 041
     Dates: start: 20160211, end: 201603
  21. PEMBROLIZUMAB. [Suspect]
     Active Substance: PEMBROLIZUMAB
     Indication: TRIPLE NEGATIVE BREAST CANCER
     Route: 041
     Dates: start: 20160211, end: 201603
  22. COMPAZINE [Concomitant]
     Active Substance: PROCHLORPERAZINE MALEATE
  23. DIPHENOXYLATE/ATROPINE [Concomitant]
     Active Substance: ATROPINE\DIPHENOXYLATE

REACTIONS (3)
  - Pneumonia [Recovered/Resolved]
  - Respiratory failure [Fatal]
  - Enteritis [Unknown]

NARRATIVE: CASE EVENT DATE: 20160326
